FAERS Safety Report 22186396 (Version 9)
Quarter: 2024Q1

REPORT INFORMATION
  Report Type: Report from Study
  Country: US (occurrence: US)
  Receive Date: 20230407
  Receipt Date: 20240105
  Transmission Date: 20240410
  Serious: Yes (Hospitalization, Other)
  Sender: FDA-Public Use
  Company Number: US-ABBVIE-4318829

PATIENT
  Age: 71 Year
  Sex: Female
  Weight: 42.637 kg

DRUGS (39)
  1. VENCLEXTA [Suspect]
     Active Substance: VENETOCLAX
     Indication: Plasma cell myeloma
     Dosage: FORM STRENGTH: 100MG?2 TABLETS BY MOUTH ONCE DAILY WITH FOOD AND A FULL GLASS OF WATER
     Route: 048
     Dates: start: 20221121, end: 20230505
  2. VENCLEXTA [Suspect]
     Active Substance: VENETOCLAX
     Indication: Plasma cell myeloma
     Dosage: FORM STRENGTH: 100MG?2 TABLETS BY MOUTH ONCE DAILY WITH FOOD AND A FULL GLASS OF WATER
     Route: 048
  3. DENOSUMAB [Concomitant]
     Active Substance: DENOSUMAB
     Indication: Product used for unknown indication
     Dates: end: 20230210
  4. ASCORBIC ACID\IRON [Concomitant]
     Active Substance: ASCORBIC ACID\IRON
     Indication: Product used for unknown indication
  5. TYLENOL [Concomitant]
     Active Substance: ACETAMINOPHEN
     Indication: Product used for unknown indication
  6. IXAZOMIB [Concomitant]
     Active Substance: IXAZOMIB
     Indication: Product used for unknown indication
     Route: 048
     Dates: start: 20190316, end: 20210312
  7. ELOTUZUMAB [Concomitant]
     Active Substance: ELOTUZUMAB
     Indication: Product used for unknown indication
     Dates: start: 20220602, end: 20221121
  8. DARATUMUMAB [Suspect]
     Active Substance: DARATUMUMAB
     Indication: Product used for unknown indication
     Dosage: LAST ADMIN DATE WAS 2021
     Route: 065
     Dates: start: 20210312
  9. DARATUMUMAB [Suspect]
     Active Substance: DARATUMUMAB
     Indication: Product used for unknown indication
     Dosage: DOSE INCREASED
     Route: 065
     Dates: start: 20210910, end: 20220429
  10. DARATUMUMAB [Suspect]
     Active Substance: DARATUMUMAB
     Indication: Product used for unknown indication
     Route: 065
  11. DARATUMUMAB [Suspect]
     Active Substance: DARATUMUMAB
     Indication: Product used for unknown indication
     Route: 065
  12. DARATUMUMAB [Suspect]
     Active Substance: DARATUMUMAB
     Indication: Product used for unknown indication
     Route: 065
  13. IBUPROFEN [Concomitant]
     Active Substance: IBUPROFEN
     Indication: Product used for unknown indication
  14. LENALIDOMIDE [Concomitant]
     Active Substance: LENALIDOMIDE
     Indication: Product used for unknown indication
     Dosage: FREQUENCY: 21 DAYS OUT OF 28
     Dates: start: 20190204, end: 20210312
  15. ISATUXIMAB [Concomitant]
     Active Substance: ISATUXIMAB
     Indication: Product used for unknown indication
     Dates: start: 20221121, end: 20230505
  16. POMALIDOMIDE [Concomitant]
     Active Substance: POMALIDOMIDE
     Indication: Product used for unknown indication
     Dosage: 21 DAYS OUT OF 28?LAST ADMIN DATE WAS 2021
     Route: 048
     Dates: start: 20210402
  17. POMALIDOMIDE [Concomitant]
     Active Substance: POMALIDOMIDE
     Indication: Product used for unknown indication
     Dosage: 21 DAYS OUT OF 28
     Route: 048
     Dates: start: 20210910, end: 20220429
  18. ACYCLOVIR [Concomitant]
     Active Substance: ACYCLOVIR
     Indication: Infection prophylaxis
     Dosage: FORM STRENGTH: 400 MG
     Route: 048
  19. BORTEZOMIB [Suspect]
     Active Substance: BORTEZOMIB
     Indication: Product used for unknown indication
     Dosage: SINGLE DOSE
     Route: 065
     Dates: start: 20190304
  20. LITHIUM [Concomitant]
     Active Substance: LITHIUM
     Indication: Product used for unknown indication
     Dates: start: 2023
  21. ASPIRIN [Concomitant]
     Active Substance: ASPIRIN
     Indication: Product used for unknown indication
     Route: 048
  22. CETIRIZINE [Concomitant]
     Active Substance: CETIRIZINE HYDROCHLORIDE
     Indication: Product used for unknown indication
     Dosage: FORM STRENGTH: 10 MG
     Route: 048
  23. CARFILZOMIB [Suspect]
     Active Substance: CARFILZOMIB
     Indication: Product used for unknown indication
     Dosage: 3 WEEK OUT OF 4
     Route: 065
  24. CARFILZOMIB [Suspect]
     Active Substance: CARFILZOMIB
     Indication: Product used for unknown indication
     Dosage: DOSE REDUCED
     Route: 065
  25. DEXAMETHASONE [Suspect]
     Active Substance: DEXAMETHASONE
     Indication: Product used for unknown indication
     Dosage: FREQUENCY TEXT: 8 MG DAY BEFORE AND DAY OF ISATUXIMAB?FORM STRENGTH: 4 MILLIGRAM
     Route: 048
     Dates: start: 20220602
  26. DEXAMETHASONE [Suspect]
     Active Substance: DEXAMETHASONE
     Indication: Product used for unknown indication
     Dosage: FORM STRENGTH: 4 MG, ON DAY 2 AND 16 OF EACH CYCLE
     Route: 048
  27. DEXAMETHASONE [Suspect]
     Active Substance: DEXAMETHASONE
     Indication: Product used for unknown indication
     Dosage: CYCLE 3-6,FORM STRENGTH: 4 MG
     Route: 048
  28. DEXAMETHASONE [Suspect]
     Active Substance: DEXAMETHASONE
     Indication: Product used for unknown indication
     Dosage: FREQUENCY 0.1 DAYS, FORM STRENGTH: 4 MG, ON DAY 8 AND 22 OF EACH CYCLE
     Route: 048
  29. DEXAMETHASONE [Suspect]
     Active Substance: DEXAMETHASONE
     Indication: Product used for unknown indication
     Dosage: 2.5 TABLETS BY MOUTH ON DAYS 1,2,8,9 OF 21 DAYS CYCLE?FORM STRENGTH: 4 MILLIGRAM
     Route: 048
  30. DEXAMETHASONE [Suspect]
     Active Substance: DEXAMETHASONE
     Indication: Product used for unknown indication
     Route: 048
     Dates: start: 20190108
  31. DEXAMETHASONE [Suspect]
     Active Substance: DEXAMETHASONE
     Indication: Product used for unknown indication
     Dosage: FREQUENCY: TWO TABS WEEKLY, INCLUDING ALL DAYS RECEIVED DARATUMUMAB?FORM STRENGTH: 4 MG
     Route: 048
  32. DEXAMETHASONE [Suspect]
     Active Substance: DEXAMETHASONE
     Indication: Product used for unknown indication
     Dosage: FREQUENCY: WEEKLY AND A DAY BEFORE DARATUMUMAB?FORM STRENGTH: 4 MG
     Route: 048
  33. GRANISETRON [Concomitant]
     Active Substance: GRANISETRON
     Indication: Nausea
     Dosage: FORM STRENGTH: 1 MG
     Route: 048
  34. PROMETHAZINE [Concomitant]
     Active Substance: PROMETHAZINE HYDROCHLORIDE
     Indication: Vomiting
     Dosage: TIME INTERVAL: AS NECESSARY: 1 TABLET ORALLY EVERY 6 HOURS AS NEEDED, FORM STRENGTH: 12.5 MG
     Route: 048
  35. ALLOPURINOL [Concomitant]
     Active Substance: ALLOPURINOL
     Indication: Product used for unknown indication
     Dosage: FORM STRENGTH: 100 MG
     Route: 048
  36. LOMOTIL [Concomitant]
     Active Substance: ATROPINE SULFATE\DIPHENOXYLATE HYDROCHLORIDE
     Indication: Diarrhoea
     Dosage: 2.5 MG-0.025 MG, 4 TIMES PER DAY AS NEEDED
     Route: 048
  37. POTASSIUM CHLORIDE [Concomitant]
     Active Substance: POTASSIUM CHLORIDE
     Indication: Product used for unknown indication
     Route: 048
  38. POTASSIUM CHLORIDE [Concomitant]
     Active Substance: POTASSIUM CHLORIDE
     Indication: Product used for unknown indication
     Dosage: FORM STRENGTH: 20 MILLIEQUIVALENTS?DOSE: 20MEQ/15ML
     Route: 048
  39. ZOLEDRONIC ACID [Concomitant]
     Active Substance: ZOLEDRONIC ACID
     Indication: Product used for unknown indication
     Dates: end: 20230210

REACTIONS (54)
  - Spinal cord compression [Unknown]
  - Therapeutic product effect incomplete [Unknown]
  - Myalgia [Unknown]
  - Anaemia [Unknown]
  - Hypercalcaemia [Unknown]
  - Memory impairment [Unknown]
  - Diarrhoea [Recovered/Resolved]
  - Flushing [Unknown]
  - Hypoaesthesia [Unknown]
  - Spinal cord compression [Unknown]
  - Contusion [Unknown]
  - Arthralgia [Unknown]
  - Dysuria [Unknown]
  - Insomnia [Unknown]
  - Bone pain [Unknown]
  - Plasma cell myeloma [Unknown]
  - Blood smear test abnormal [Unknown]
  - Pain [Recovered/Resolved]
  - Gastroenteritis salmonella [Unknown]
  - Dyspnoea [Unknown]
  - Decreased appetite [Recovering/Resolving]
  - Cough [Recovering/Resolving]
  - Stomatitis [Recovering/Resolving]
  - Mass [Recovering/Resolving]
  - Fatigue [Unknown]
  - Plasma cell myeloma [Recovered/Resolved]
  - Metastases to spine [Unknown]
  - Nausea [Unknown]
  - Renal failure [Unknown]
  - Hypokalaemia [Unknown]
  - Pain [Unknown]
  - Hepatitis [Unknown]
  - Pain [Recovered/Resolved]
  - Pyrexia [Recovering/Resolving]
  - Vomiting [Unknown]
  - Headache [Unknown]
  - Neutropenia [Recovered/Resolved]
  - Plasma cell myeloma [Recovered/Resolved]
  - Adverse drug reaction [Unknown]
  - Neutropenia [Unknown]
  - Abdominal pain [Unknown]
  - Loss of personal independence in daily activities [Unknown]
  - Pain [Unknown]
  - Constipation [Recovering/Resolving]
  - Hypoaesthesia teeth [Unknown]
  - Tinnitus [Unknown]
  - Hypoacusis [Unknown]
  - Depression [Unknown]
  - Adverse drug reaction [Unknown]
  - Thrombocytopenia [Recovering/Resolving]
  - Adverse drug reaction [Unknown]
  - Hypoaesthesia oral [Unknown]
  - Hypoaesthesia [Unknown]
  - Axillary mass [Unknown]

NARRATIVE: CASE EVENT DATE: 20181101
